FAERS Safety Report 10206754 (Version 1)
Quarter: 2014Q2

REPORT INFORMATION
  Report Type: Other
  Country: GB (occurrence: GB)
  Receive Date: 20140530
  Receipt Date: 20140530
  Transmission Date: 20141212
  Serious: Yes (Other)
  Sender: FDA-Public Use
  Company Number: GB-ASTELLAS-2014EU005963

PATIENT
  Age: 76 Year
  Sex: Male

DRUGS (3)
  1. URICLIN [Suspect]
     Indication: HYPERTONIC BLADDER
     Route: 048
     Dates: start: 20140319, end: 20140321
  2. ZOLADEX LA [Concomitant]
     Indication: PRODUCT USED FOR UNKNOWN INDICATION
     Dosage: 10.8 MG, UNKNOWN FREQ.
     Route: 058
     Dates: start: 201402
  3. RADIOTHERAPY [Concomitant]
     Indication: PROSTATE CANCER
     Dosage: UNK, UNKNOWN FREQ.
     Route: 065

REACTIONS (2)
  - Vision blurred [Recovering/Resolving]
  - Vitreous haemorrhage [Recovering/Resolving]
